FAERS Safety Report 19292514 (Version 1)
Quarter: 2021Q2

REPORT INFORMATION
  Report Type: Other
  Country: US (occurrence: US)
  Receive Date: 20210524
  Receipt Date: 20210524
  Transmission Date: 20210717
  Serious: Yes (Other)
  Sender: FDA-Public Use
  Company Number: US-ROCHE-2813681

PATIENT
  Sex: Female
  Weight: 48 kg

DRUGS (10)
  1. CONJUGATED ESTROGENS [Concomitant]
     Active Substance: ESTROGENS, CONJUGATED
     Route: 067
  2. OCREVUS [Suspect]
     Active Substance: OCRELIZUMAB
     Indication: MULTIPLE SCLEROSIS
     Dosage: DATE OF TREATMENT: 30/JAN/2018, 08/FEB/2019, 23/AUG/2019, 02/MAR/2020, 03/MAR/2020
     Route: 065
     Dates: start: 20180116, end: 20201002
  3. WELLBUTRIN [Concomitant]
     Active Substance: BUPROPION HYDROCHLORIDE
     Route: 048
  4. METHENAMINE [Concomitant]
     Active Substance: METHENAMINE
     Route: 048
  5. NITROFURANTOIN MONOHYDRATE [Concomitant]
     Active Substance: NITROFURANTOIN MONOHYDRATE
     Route: 048
  6. PHENAZOPYRIDINE. [Concomitant]
     Active Substance: PHENAZOPYRIDINE
     Route: 048
  7. DOCUSATE SODIUM. [Concomitant]
     Active Substance: DOCUSATE SODIUM
     Route: 048
  8. ATORVASTATIN [Concomitant]
     Active Substance: ATORVASTATIN
     Route: 048
  9. DILTIAZEM. [Concomitant]
     Active Substance: DILTIAZEM
     Route: 061
  10. AMPICILLIN [Concomitant]
     Active Substance: AMPICILLIN
     Route: 048

REACTIONS (3)
  - Infection [Not Recovered/Not Resolved]
  - Immunoglobulins decreased [Recovering/Resolving]
  - Urinary tract infection [Recovering/Resolving]
